FAERS Safety Report 5831759-4 (Version None)
Quarter: 2008Q3

REPORT INFORMATION
  Report Type: 
  Country: None (occurrence: None)
  Receive Date: 20080803
  Receipt Date: 20080724
  Transmission Date: 20090109
  Serious: Yes (Hospitalization)
  Sender: FDA-Public Use
  Company Number: PHHY2008FR15260

PATIENT
  Sex: Female

DRUGS (4)
  1. VALSARTAN AND HYDROCHLOROTHIAZIDE [Suspect]
     Indication: HYPERTENSION
     Dosage: UNK
     Dates: start: 20071201, end: 20080222
  2. TANAKAN [Concomitant]
     Dosage: UNK
  3. PIASCLEDINE [Concomitant]
     Dosage: UNK
  4. GINKOR FORT [Concomitant]

REACTIONS (4)
  - CONFUSIONAL STATE [None]
  - DEMENTIA [None]
  - HYPONATRAEMIA [None]
  - VITAMIN B12 DECREASED [None]
